FAERS Safety Report 20305655 (Version 1)
Quarter: 2022Q1

REPORT INFORMATION
  Report Type: Spontaneous
  Country: US (occurrence: None)
  Receive Date: 20220106
  Receipt Date: 20220106
  Transmission Date: 20220423
  Serious: Yes (Hospitalization)
  Sender: FDA-Public Use
  Company Number: None

PATIENT
  Age: 73 Year
  Sex: Male

DRUGS (1)
  1. ABIRATERONE [Suspect]
     Active Substance: ABIRATERONE
     Indication: Prostate cancer
     Dosage: OTHER QUANTITY : 250MG;4 TAB DAILY;?FREQUENCY : DAILY;?
     Route: 048
     Dates: start: 201902

REACTIONS (2)
  - Cellulitis [None]
  - Wound [None]

NARRATIVE: CASE EVENT DATE: 20211211
